FAERS Safety Report 16312969 (Version 1)
Quarter: 2019Q2

REPORT INFORMATION
  Report Type: Other
  Country: CA (occurrence: CA)
  Receive Date: 20190515
  Receipt Date: 20190515
  Transmission Date: 20190711
  Serious: Yes (Hospitalization)
  Sender: FDA-Public Use
  Company Number: CA-APOTEX-2019AP013693

PATIENT
  Age: 26 Year
  Sex: Male
  Weight: 103 kg

DRUGS (1)
  1. RAMIPRIL. [Suspect]
     Active Substance: RAMIPRIL
     Indication: HYPERTENSION
     Dosage: 5 MG, QD
     Route: 048

REACTIONS (3)
  - Anxiety [Recovered/Resolved]
  - Tremor [Recovered/Resolved]
  - Peripheral coldness [Recovered/Resolved]
